FAERS Safety Report 8347962-8 (Version None)
Quarter: 2012Q2

REPORT INFORMATION
  Report Type: 
  Country: None (occurrence: None)
  Receive Date: 20120509
  Receipt Date: 20120502
  Transmission Date: 20120825
  Serious: Yes (Other)
  Sender: FDA-Public Use
  Company Number: US-ELI_LILLY_AND_COMPANY-US201205001650

PATIENT
  Sex: Female
  Weight: 63.946 kg

DRUGS (4)
  1. DIURETICS [Concomitant]
  2. ADCIRCA [Suspect]
  3. PRADAXA [Concomitant]
  4. REMODULIN [Concomitant]
     Indication: PULMONARY HYPERTENSION
     Dosage: 50 DF, OTHER
     Route: 042
     Dates: start: 20111103

REACTIONS (1)
  - VISUAL IMPAIRMENT [None]
